FAERS Safety Report 5237884-3 (Version None)
Quarter: 2007Q1

REPORT INFORMATION
  Report Type: 
  Country: None (occurrence: None)
  Receive Date: 20070209
  Receipt Date: 20070201
  Transmission Date: 20070707
  Serious: Yes (Other)
  Sender: FDA-Public Use
  Company Number: IMP_2708_2007

PATIENT

DRUGS (1)
  1. OXYCODONE HCL [Suspect]
     Dosage: DF

REACTIONS (3)
  - HEART RATE INCREASED [None]
  - HYPERSOMNIA [None]
  - LOSS OF CONSCIOUSNESS [None]
